FAERS Safety Report 23505614 (Version 2)
Quarter: 2024Q1

REPORT INFORMATION
  Report Type: Spontaneous
  Country: GB (occurrence: GB)
  Receive Date: 20240209
  Receipt Date: 20240306
  Transmission Date: 20240410
  Serious: Yes (Hospitalization)
  Sender: FDA-Public Use
  Company Number: GB-BAXTERJP-2024BAX011895AA

PATIENT
  Age: 6 Year
  Sex: Male

DRUGS (2)
  1. CALCIUM CL\DEXTROSE\MAGNESIUM CL\SODIUM BICAR\SODIUM CL\SODIUM LACT [Suspect]
     Active Substance: CALCIUM CHLORIDE\DEXTROSE MONOHYDRATE\MAGNESIUM CHLORIDE\SODIUM BICARBONATE\SODIUM CHLORIDE\SODIUM L
     Dosage: 2 (DETAILS NOT REPORTED) PER DAY
     Route: 033
  2. EXTRANEAL [Suspect]
     Active Substance: CALCIUM CHLORIDE\ICODEXTRIN\MAGNESIUM CHLORIDE\SODIUM CHLORIDE\SODIUM LACTATE
     Dosage: 1 (DETAILS NOT REPORTED) PER DAY
     Route: 033

REACTIONS (7)
  - Infection [Unknown]
  - Peritoneal dialysis complication [Unknown]
  - Accidental exposure to product by child [Unknown]
  - Device physical property issue [Unknown]
  - Product contamination [Unknown]
  - Pharyngitis [Unknown]
  - Ear infection [Unknown]

NARRATIVE: CASE EVENT DATE: 20240123
